FAERS Safety Report 8417251 (Version 4)
Quarter: 2013Q4

REPORT INFORMATION
  Report Type: Report from Study
  Country: AU (occurrence: AU)
  Receive Date: 20120220
  Receipt Date: 20131018
  Transmission Date: 20140711
  Serious: Yes (Death)
  Sender: FDA-Public Use
  Company Number: AU-ROCHE-1039208

PATIENT
  Age: 76 Year
  Sex: Female
  Weight: 80 kg

DRUGS (6)
  1. ACTEMRA [Suspect]
     Indication: RHEUMATOID ARTHRITIS
     Dosage: DOSE :8 MG/KG
     Route: 042
     Dates: start: 20110816
  2. PREDNISOLONE [Suspect]
     Indication: RHEUMATOID ARTHRITIS
     Route: 065
     Dates: start: 2006
  3. ARAVA [Concomitant]
     Indication: RHEUMATOID ARTHRITIS
     Route: 048
     Dates: start: 2006
  4. ARAVA [Concomitant]
     Route: 048
  5. PLAQUENIL [Concomitant]
     Indication: RHEUMATOID ARTHRITIS
     Route: 048
     Dates: start: 2006
  6. METHOTREXATE [Concomitant]
     Route: 048

REACTIONS (2)
  - Aortic aneurysm rupture [Fatal]
  - Malaise [Fatal]
